FAERS Safety Report 24782305 (Version 1)
Quarter: 2024Q4

REPORT INFORMATION
  Report Type: Spontaneous
  Country: CA (occurrence: CA)
  Receive Date: 20241227
  Receipt Date: 20241227
  Transmission Date: 20250114
  Serious: Yes (Death)
  Sender: ANI
  Company Number: CA-ANIPHARMA-2024-CA-005192

PATIENT
  Age: 43 Year
  Sex: Female
  Weight: 68 kg

DRUGS (84)
  1. CANDESARTAN CILEXETIL [Suspect]
     Active Substance: CANDESARTAN CILEXETIL
     Indication: Product used for unknown indication
  2. ALFACALCIDOL [Suspect]
     Active Substance: ALFACALCIDOL
  3. PREDNISONE [Suspect]
     Active Substance: PREDNISONE
  4. ATOMOXETINE [Suspect]
     Active Substance: ATOMOXETINE HYDROCHLORIDE
     Dosage: 1 DOSAGE FORM
  5. BERINERT [Suspect]
     Active Substance: HUMAN C1-ESTERASE INHIBITOR
  6. BETAMETHASONE [Suspect]
     Active Substance: BETAMETHASONE
  7. BOTULINUM TOXIN TYPE A [Suspect]
     Active Substance: BOTULINUM TOXIN TYPE A
     Route: 030
  8. BUPRENORPHINE [Suspect]
     Active Substance: BUPRENORPHINE
  9. CALCIUM [Suspect]
     Active Substance: CALCIUM
  10. CALCIUM GLUBIONATE [Suspect]
     Active Substance: CALCIUM GLUBIONATE
  11. CELECOXIB [Suspect]
     Active Substance: CELECOXIB
     Dosage: UNK, BID
  12. QUETIAPINE FUMARATE [Suspect]
     Active Substance: QUETIAPINE FUMARATE
  13. CETIRIZINE [Suspect]
     Active Substance: CETIRIZINE HYDROCHLORIDE
     Route: 048
  14. CHLORHEXIDINE [Suspect]
     Active Substance: CHLORHEXIDINE
     Route: 061
  15. CHOLECALCIFEROL [Suspect]
     Active Substance: CHOLECALCIFEROL
  16. CIMZIA [Suspect]
     Active Substance: CERTOLIZUMAB PEGOL
     Dosage: 2 DOSAGE FORM; 400 MILLIGRAM; 10 MILLIGRAM
     Route: 058
  17. CORTISONE [Suspect]
     Active Substance: CORTISONE
     Dosage: 25 MILLIGRAM
  18. COSENTYX [Suspect]
     Active Substance: SECUKINUMAB
  19. CYCLOBENZAPRINE [Suspect]
     Active Substance: CYCLOBENZAPRINE
     Dosage: 1 DOSAGE FORM, QD
  20. CYCLOBENZAPRINE [Suspect]
     Active Substance: CYCLOBENZAPRINE
     Dosage: 1 DOSAGE FORM, QD;
  21. DESOXIMETASONE [Suspect]
     Active Substance: DESOXIMETASONE
  22. DICLOFENAC [Suspect]
     Active Substance: DICLOFENAC
     Dosage: 50 MILLIGRAM
  23. BUPIVACAINE [Suspect]
     Active Substance: BUPIVACAINE
  24. DOMPERIDONE [Suspect]
     Active Substance: DOMPERIDONE
  25. DOXYCYCLINE HYCLATE [Suspect]
     Active Substance: DOXYCYCLINE HYCLATE
     Dosage: 40 MILLIGRAM
  26. ERGOCALCIFEROL [Suspect]
     Active Substance: ERGOCALCIFEROL
  27. ETANERCEPT [Suspect]
     Active Substance: ETANERCEPT
     Route: 058
  28. FETZIMA [Suspect]
     Active Substance: LEVOMILNACIPRAN HYDROCHLORIDE
  29. FINACEA [Suspect]
     Active Substance: AZELAIC ACID
  30. FLUTICASONE [Suspect]
     Active Substance: FLUTICASONE
  31. FOLIC ACID [Suspect]
     Active Substance: FOLIC ACID
  32. HUMIRA [Suspect]
     Active Substance: ADALIMUMAB
     Dosage: 40 MILLIGRAM; 10 MILLIGRAM
     Route: 058
  33. HYDROCORTISONE [Suspect]
     Active Substance: HYDROCORTISONE
     Dosage: 25 MILLIGRAM
     Route: 048
  34. AZATHIOPRINE [Suspect]
     Active Substance: AZATHIOPRINE
     Route: 050
  35. HYDROMORPHONE [Suspect]
     Active Substance: HYDROMORPHONE
  36. HYDROXYCHLOROQUINE [Suspect]
     Active Substance: HYDROXYCHLOROQUINE
     Dosage: 400 MILLIGRAM, QD
  37. KEVZARA [Suspect]
     Active Substance: SARILUMAB
  38. LAMOTRIGINE [Suspect]
     Active Substance: LAMOTRIGINE
     Dosage: 25 MILLIGRAM
     Route: 048
  39. LEFLUNOMIDE [Suspect]
     Active Substance: LEFLUNOMIDE
     Dosage: 20 MILLIGRAM, QD; 10 MILLIGRAM, QD;
  40. CLIOQUINOL\FLUMETHASONE [Suspect]
     Active Substance: CLIOQUINOL\FLUMETHASONE
  41. LYRICA [Suspect]
     Active Substance: PREGABALIN
  42. MESALAMINE [Suspect]
     Active Substance: MESALAMINE
  43. METHOTREXATE [Suspect]
     Active Substance: METHOTREXATE
     Dosage: 25 MILLIGRAM; 225 MILLIGRAM; 20 MILLIGRAM, QD
  44. MYCOPHENOLATE MOFETIL [Suspect]
     Active Substance: MYCOPHENOLATE MOFETIL
  45. ACETAMINOPHEN [Suspect]
     Active Substance: ACETAMINOPHEN
     Dosage: 10 MILLIGRAM
  46. MYRBETRIQ [Suspect]
     Active Substance: MIRABEGRON
     Dosage: 1 DOSAGE FORM, QD
     Route: 048
  47. NAPROXEN SODIUM [Suspect]
     Active Substance: NAPROXEN SODIUM
     Dosage: 500 MILLIGRAM, BID
  48. NUCALA [Suspect]
     Active Substance: MEPOLIZUMAB
  49. ORENCIA [Suspect]
     Active Substance: ABATACEPT
     Dosage: 125 MILLIGRAM; 1 DOSAGE FORM
     Route: 042
  50. OTEZLA [Suspect]
     Active Substance: APREMILAST
     Dosage: 10 MILLIGRAM; 3 MILLIGRAM, BID
  51. OXYCODONE [Suspect]
     Active Substance: OXYCODONE
  52. PANTOPRAZOLE [Suspect]
     Active Substance: PANTOPRAZOLE
     Route: 050
  53. PERCOCET [Suspect]
     Active Substance: ACETAMINOPHEN\OXYCODONE HYDROCHLORIDE
     Dosage: 10 MILLIGRAM
  54. PHENYLEPHRINE HYDROCHLORIDE [Suspect]
     Active Substance: PHENYLEPHRINE HYDROCHLORIDE
  55. PHTHALYLSULFATHIAZOLE [Suspect]
     Active Substance: PHTHALYLSULFATHIAZOLE
     Dosage: 400 MILLIGRAM; 1000 MILLIGRAM; 500 MILLIGRAM, QD;
  56. TRAMADOL HYDROCHLORIDE AND ACETAMINOPHEN [Suspect]
     Active Substance: ACETAMINOPHEN\TRAMADOL HYDROCHLORIDE
     Dosage: 10 MILLIGRAM
  57. PREDNISOLONE [Suspect]
     Active Substance: PREDNISOLONE
     Dosage: 5 MILLIGRAM; 40 MILLIGRAM; 1 MILLIGRAM
     Route: 048
  58. PSEUDOEPHEDRINE [Suspect]
     Active Substance: PSEUDOEPHEDRINE
     Dosage: 1 MILLIGRAM; 10 MILLIGRAM; 25 MILLIGRAM
  59. RAMIPRIL [Suspect]
     Active Substance: RAMIPRIL
  60. RANITIDINE [Suspect]
     Active Substance: RANITIDINE
     Route: 042
  61. CETIRIZINE HYDROCHLORIDE\PSEUDOEPHEDRINE HYDROCHLORIDE [Suspect]
     Active Substance: CETIRIZINE HYDROCHLORIDE\PSEUDOEPHEDRINE HYDROCHLORIDE
     Dosage: 25 MILLIGRAM
  62. REMICADE [Suspect]
     Active Substance: INFLIXIMAB
     Route: 042
  63. RITUXAN [Suspect]
     Active Substance: RITUXIMAB
     Route: 058
  64. RITUXIMAB [Suspect]
     Active Substance: RITUXIMAB
     Route: 042
  65. DIETARY SUPPLEMENT\HERBALS [Suspect]
     Active Substance: DIETARY SUPPLEMENT\HERBALS
     Route: 048
  66. SIMPONI [Suspect]
     Active Substance: GOLIMUMAB
     Route: 058
  67. ACTEMRA [Suspect]
     Active Substance: TOCILIZUMAB
     Dosage: 20 MILLIGRAM; 2912 MILLIGRAM; UNK; 728 MILLIGRAM
     Route: 058
  68. SIRUKUMAB [Suspect]
     Active Substance: SIRUKUMAB
  69. SOLU-MEDROL [Suspect]
     Active Substance: METHYLPREDNISOLONE SODIUM SUCCINATE
     Route: 048
  70. SULFASALAZINE [Suspect]
     Active Substance: SULFASALAZINE
     Dosage: 300 MILLIGRAM, QD; 1000 MILLIGRAM, BID; 1 GRAM; 10 MILLIGRAM; 500 MILLIGRAM; 2 GRAM; 100 MILLIGRAM
     Route: 048
  71. TOFACITINIB [Suspect]
     Active Substance: TOFACITINIB
     Dosage: 5 MILLIGRAM
  72. TOPIRAMATE [Suspect]
     Active Substance: TOPIRAMATE
     Dosage: 25 MILLIGRAM, QD
  73. TRAZODONE [Suspect]
     Active Substance: TRAZODONE HYDROCHLORIDE
  74. TRETINOIN [Suspect]
     Active Substance: TRETINOIN
  75. USTEKINUMAB [Suspect]
     Active Substance: USTEKINUMAB
     Dosage: 40 MILLIGRAM
     Route: 058
  76. VITAMIN C [Suspect]
     Active Substance: ASCORBIC ACID
  77. ATIVAN [Concomitant]
     Active Substance: LORAZEPAM
  78. AIMOVIG [Suspect]
     Active Substance: ERENUMAB\ERENUMAB-AOOE
  79. LISINOPRIL [Concomitant]
     Active Substance: LISINOPRIL
  80. VASCEPA [Concomitant]
     Active Substance: ICOSAPENT ETHYL
  81. LORAZEPAM [Concomitant]
     Active Substance: LORAZEPAM
  82. DESOGESTREL AND ETHINYL ESTRADIOL [Concomitant]
     Active Substance: DESOGESTREL\ETHINYL ESTRADIOL
  83. CODEINE [Concomitant]
     Active Substance: CODEINE
  84. ALENDRONIC ACID [Suspect]
     Active Substance: ALENDRONIC ACID
     Dosage: 10 MILLIGRAM
     Route: 050

REACTIONS (4)
  - Off label use [Fatal]
  - Maternal exposure during pregnancy [Fatal]
  - Overlap syndrome [Fatal]
  - Condition aggravated [Fatal]
